FAERS Safety Report 13679594 (Version 1)
Quarter: 2017Q2

REPORT INFORMATION
  Report Type: Spontaneous
  Country: ES (occurrence: ES)
  Receive Date: 20170622
  Receipt Date: 20170622
  Transmission Date: 20170830
  Serious: Yes (Other)
  Sender: FDA-Public Use
  Company Number: ES-FRESENIUS KABI-FK201705320

PATIENT
  Age: 20 Year
  Sex: Male

DRUGS (1)
  1. METHOTREXATE (MANUFACTURER UNKNOWN) [Suspect]
     Active Substance: METHOTREXATE
     Indication: CROHN^S DISEASE
     Route: 065

REACTIONS (3)
  - Off label use [Recovering/Resolving]
  - Gastroenteritis bacterial [Recovering/Resolving]
  - Medication error [Recovering/Resolving]
